FAERS Safety Report 8111051-8 (Version None)
Quarter: 2012Q1

REPORT INFORMATION
  Report Type: 
  Country: None (occurrence: None)
  Receive Date: 20120203
  Receipt Date: 20110311
  Transmission Date: 20120608
  Serious: No
  Sender: FDA-Public Use
  Company Number: US-GLAXOSMITHKLINE-A0918610A

PATIENT
  Sex: Female

DRUGS (1)
  1. LAMICTAL [Suspect]
     Indication: MOOD SWINGS
     Dosage: 150MG PER DAY
     Route: 065

REACTIONS (2)
  - DRUG INEFFECTIVE [None]
  - ANGER [None]
